FAERS Safety Report 9533475 (Version 1)
Quarter: 2013Q2

REPORT INFORMATION
  Report Type: Spontaneous
  Country: US (occurrence: None)
  Receive Date: 20130403
  Receipt Date: 20130403
  Transmission Date: 20140414
  Serious: No
  Sender: FDA-Public Use
  Company Number: US-2012-11382

PATIENT
  Age: 17 None
  Sex: Male

DRUGS (2)
  1. BUSULFEX [Suspect]
     Indication: STEM CELL TRANSPLANT
     Dosage: 1MG/KG FOR EVERY 6 HOURS X 16 DOSES OVER 4 DAYS, INTRAVENOUS
  2. CYTOXAN (CYCLOPHOSPHAMIDE) [Concomitant]

REACTIONS (2)
  - Bacteraemia [None]
  - Parainfluenzae virus infection [None]
